FAERS Safety Report 14553802 (Version 1)
Quarter: 2018Q1

REPORT INFORMATION
  Report Type: Spontaneous
  Country: GB (occurrence: GB)
  Receive Date: 20180220
  Receipt Date: 20180220
  Transmission Date: 20180509
  Serious: Yes (Other)
  Sender: FDA-Public Use
  Company Number: GB-ELI_LILLY_AND_COMPANY-GB201802004372

PATIENT
  Age: 66 Year
  Weight: 115 kg

DRUGS (1)
  1. HUMULIN M3 (MIXTURE 30/70) [Suspect]
     Active Substance: INSULIN HUMAN
     Indication: TYPE 2 DIABETES MELLITUS
     Dosage: 46 IU, DAILY
     Route: 065
     Dates: start: 20180125

REACTIONS (2)
  - Dyspnoea [Unknown]
  - Pruritus [Unknown]

NARRATIVE: CASE EVENT DATE: 20180125
